FAERS Safety Report 6412969-4 (Version None)
Quarter: 2009Q4

REPORT INFORMATION
  Report Type: 
  Country: None (occurrence: None)
  Receive Date: 20091023
  Receipt Date: 20091012
  Transmission Date: 20100525
  Serious: Yes (Hospitalization, Other)
  Sender: FDA-Public Use
  Company Number: PHHY2009NL43902

PATIENT
  Age: 51 Year
  Sex: Male

DRUGS (6)
  1. IMATINIB MESYLATE [Suspect]
     Indication: CHRONIC MYELOID LEUKAEMIA
     Dosage: 800 MG, QD
  2. CYTARABINE [Concomitant]
     Indication: CHRONIC MYELOID LEUKAEMIA
     Dosage: 200 MG/M2, QMO
     Route: 037
  3. DEXAMETHASONE [Concomitant]
     Dosage: UNK
  4. ACYCLOVIR [Concomitant]
  5. CYCLOPHOSPHAMIDE [Concomitant]
  6. RADIATION THERAPY [Concomitant]
     Dosage: 12 GY

REACTIONS (21)
  - ACTIVITIES OF DAILY LIVING IMPAIRED [None]
  - APHASIA [None]
  - ATAXIA [None]
  - BLAST CRISIS IN MYELOGENOUS LEUKAEMIA [None]
  - BRADYPHRENIA [None]
  - BRAIN OEDEMA [None]
  - CHRONIC GRAFT VERSUS HOST DISEASE [None]
  - CONDUCTIVE DEAFNESS [None]
  - CONFUSIONAL STATE [None]
  - DEAFNESS NEUROSENSORY [None]
  - DIPLOPIA [None]
  - DISTURBANCE IN ATTENTION [None]
  - GAIT DISTURBANCE [None]
  - HEARING AID USER [None]
  - HEARING IMPAIRED [None]
  - INTRACRANIAL PRESSURE INCREASED [None]
  - LEUKAEMIC INFILTRATION BRAIN [None]
  - NECK PAIN [None]
  - PUPILS UNEQUAL [None]
  - STEM CELL TRANSPLANT [None]
  - VITH NERVE PARALYSIS [None]
